FAERS Safety Report 11071157 (Version 4)
Quarter: 2015Q2

REPORT INFORMATION
  Report Type: Spontaneous
  Country: JP (occurrence: JP)
  Receive Date: 20150428
  Receipt Date: 20150630
  Transmission Date: 20150821
  Serious: Yes (Hospitalization)
  Sender: FDA-Public Use
  Company Number: JP-JNJFOC-20150406983

PATIENT
  Age: 62 Year
  Sex: Male
  Weight: 40 kg

DRUGS (4)
  1. ITRIZOLE [Suspect]
     Active Substance: ITRACONAZOLE
     Indication: BRONCHOPULMONARY ASPERGILLOSIS
     Route: 048
     Dates: start: 20150318, end: 20150409
  2. CANCIDAS [Concomitant]
     Active Substance: CASPOFUNGIN ACETATE
     Indication: BRONCHOPULMONARY ASPERGILLOSIS
     Route: 042
     Dates: start: 20150304, end: 20150518
  3. LUPRAC [Concomitant]
     Active Substance: TORSEMIDE
     Indication: PLEURAL EFFUSION
     Route: 048
     Dates: start: 20150318, end: 20150409
  4. CARBOCISTEINE [Concomitant]
     Active Substance: CARBOCYSTEINE
     Indication: SPUTUM INCREASED
     Route: 048

REACTIONS (6)
  - Wrong technique in drug usage process [Unknown]
  - Oral discomfort [Unknown]
  - Dysgeusia [Recovered/Resolved]
  - Decreased appetite [Recovered/Resolved]
  - Lung disorder [Recovered/Resolved]
  - Incorrect product storage [Unknown]

NARRATIVE: CASE EVENT DATE: 20150319
